FAERS Safety Report 7836336-1 (Version None)
Quarter: 2011Q4

REPORT INFORMATION
  Report Type: 
  Country: None (occurrence: None)
  Receive Date: 20111024
  Receipt Date: 20110214
  Transmission Date: 20120403
  Serious: No
  Sender: FDA-Public Use
  Company Number: US-ABBOTT-11P-163-0706282-00

PATIENT
  Sex: Female

DRUGS (5)
  1. LUPRON DEPOT [Suspect]
     Indication: ADENOMYOSIS
     Dates: start: 20100726
  2. LUPRON DEPOT [Suspect]
     Indication: MENORRHAGIA
  3. NORETHINDRONE ACETATE [Suspect]
  4. LUPRON DEPOT [Suspect]
     Indication: IRON DEFICIENCY
  5. NORETHINDRONE ACETATE [Suspect]
     Indication: PRODUCT USED FOR UNKNOWN INDICATION

REACTIONS (2)
  - HEPATIC ENZYME INCREASED [None]
  - MENORRHAGIA [None]
